FAERS Safety Report 17064955 (Version 1)
Quarter: 2019Q4

REPORT INFORMATION
  Report Type: Spontaneous
  Country: US (occurrence: US)
  Receive Date: 20191024
  Receipt Date: 20191024
  Transmission Date: 20200122
  Serious: No
  Sender: FDA-Public Use
  Company Number: None

PATIENT

DRUGS (3)
  1. TOPOTECAN HCL [Suspect]
     Active Substance: TOPOTECAN HYDROCHLORIDE
     Route: 030
  2. METHOTREXATE INJECTION [Suspect]
     Active Substance: METHOTREXATE
  3. ETOPOSIDE. [Suspect]
     Active Substance: ETOPOSIDE

REACTIONS (1)
  - Intercepted product storage error [None]
